FAERS Safety Report 8068138-8 (Version None)
Quarter: 2012Q1

REPORT INFORMATION
  Report Type: 
  Country: None (occurrence: None)
  Receive Date: 20120124
  Receipt Date: 20110923
  Transmission Date: 20120608
  Serious: No
  Sender: FDA-Public Use
  Company Number: US-AMGEN-USASP2011049324

PATIENT
  Age: 91 Year
  Sex: Female
  Weight: 45.4 kg

DRUGS (6)
  1. VITAMIN D [Concomitant]
  2. PROLIA [Suspect]
     Indication: OSTEOPOROSIS POSTMENOPAUSAL
     Dosage: 60 MG, Q6MO
     Dates: start: 20110725
  3. METOPROLOL TARTRATE [Concomitant]
  4. OCUVITE                            /01053801/ [Concomitant]
  5. ASPIRIN [Concomitant]
     Dosage: UNK
  6. CALCIUM [Concomitant]

REACTIONS (3)
  - HYPOAESTHESIA [None]
  - MALAISE [None]
  - SENSATION OF HEAVINESS [None]
